FAERS Safety Report 6426687-X (Version None)
Quarter: 2009Q4

REPORT INFORMATION
  Report Type: 
  Country: None (occurrence: None)
  Receive Date: 20091104
  Receipt Date: 20091027
  Transmission Date: 20100525
  Serious: Yes (Disabling, Other)
  Sender: FDA-Public Use
  Company Number: GB-AVENTIS-200919834GDDC

PATIENT
  Age: 39 Year
  Sex: Female
  Weight: 70 kg

DRUGS (5)
  1. ARAVA [Suspect]
     Route: 048
     Dates: start: 20090423, end: 20090618
  2. METHOTREXATE [Concomitant]
     Dates: start: 20080601
  3. SULFASALAZINE [Concomitant]
     Dates: start: 20090202, end: 20090618
  4. DICLOFENAC [Concomitant]
     Route: 048
     Dates: start: 20080601
  5. LANSOPRAZOLE [Concomitant]
     Route: 048
     Dates: start: 20080601

REACTIONS (6)
  - ALOPECIA TOTALIS [None]
  - BLOOD THYROID STIMULATING HORMONE INCREASED [None]
  - DEPRESSION [None]
  - IMPAIRED WORK ABILITY [None]
  - SELF ESTEEM DECREASED [None]
  - TREATMENT NONCOMPLIANCE [None]
